FAERS Safety Report 10160611 (Version 1)
Quarter: 2014Q2

REPORT INFORMATION
  Report Type: Report from Study
  Country: US (occurrence: US)
  Receive Date: 20140508
  Receipt Date: 20140508
  Transmission Date: 20141212
  Serious: Yes (Other)
  Sender: FDA-Public Use
  Company Number: US-BRISTOL-MYERS SQUIBB COMPANY-20703807

PATIENT
  Age: 52 Year
  Sex: Female
  Weight: 83.91 kg

DRUGS (3)
  1. CETUXIMAB [Suspect]
     Indication: ADENOCARCINOMA OF COLON
     Dosage: VIAL?LAST DOSE:10DEC12
     Route: 042
     Dates: start: 20120416
  2. RAMUCIRUMAB [Suspect]
     Indication: ADENOCARCINOMA OF COLON
     Dosage: LIQUID
     Dates: start: 20120416, end: 20121126
  3. IRINOTECAN HCL [Suspect]
     Indication: ADENOCARCINOMA OF COLON
     Dosage: LAST DOSE:10DEC12
     Route: 042
     Dates: start: 20120416

REACTIONS (1)
  - Blood pressure increased [Recovered/Resolved]
